FAERS Safety Report 6729358-5 (Version None)
Quarter: 2010Q2

REPORT INFORMATION
  Report Type: 
  Country: None (occurrence: None)
  Receive Date: 20100517
  Receipt Date: 20100511
  Transmission Date: 20101027
  Serious: No
  Sender: FDA-Public Use
  Company Number: US-ABBOTT-10P-163-0644885-00

PATIENT
  Age: 60 Year
  Sex: Male
  Weight: 83.536 kg

DRUGS (4)
  1. SIMCOR [Suspect]
     Indication: BLOOD CHOLESTEROL INCREASED
     Dosage: 500/20MG, ONCE DAILY
     Dates: start: 20100101, end: 20100401
  2. PRISTIQ [Concomitant]
     Indication: DEPRESSION
     Dosage: DAILY
  3. ABILIFY [Concomitant]
     Indication: DEPRESSION
     Dosage: DAILY
  4. DIOVAN [Concomitant]
     Indication: HYPERTENSION
     Dosage: DAILY

REACTIONS (1)
  - BLOOD GLUCOSE INCREASED [None]
